FAERS Safety Report 9265477 (Version 1)
Quarter: 2013Q2

REPORT INFORMATION
  Report Type: Spontaneous
  Country: DE (occurrence: DE)
  Receive Date: 20130501
  Receipt Date: 20130501
  Transmission Date: 20140414
  Serious: Yes (Other)
  Sender: FDA-Public Use
  Company Number: DE-ASTRAZENECA-2013SE27833

PATIENT
  Age: 41 Year
  Sex: Male
  Weight: 62 kg

DRUGS (1)
  1. SYMBICORT TURBOHALER [Suspect]
     Indication: ASTHMA
     Dosage: 160/4.5 UG, 2 DF DOSAGE FORM EVERY DAY (CUMULATIVE DOSE TO THE FIRST REACTION-6 DOSAGE FORMS)
     Route: 055
     Dates: start: 20121206, end: 20130108

REACTIONS (3)
  - Aphasia [Recovered/Resolved]
  - Disturbance in attention [Recovered/Resolved]
  - Memory impairment [Recovered/Resolved]
